FAERS Safety Report 7770175-5 (Version None)
Quarter: 2011Q3

REPORT INFORMATION
  Report Type: 
  Country: None (occurrence: None)
  Receive Date: 20110922
  Receipt Date: 20110418
  Transmission Date: 20111222
  Serious: No
  Sender: FDA-Public Use
  Company Number: US-ASTRAZENECA-2006UW26628

PATIENT
  Age: 15268 Day
  Sex: Male
  Weight: 127 kg

DRUGS (5)
  1. SEROQUEL [Suspect]
     Indication: HALLUCINATION, AUDITORY
     Dosage: 50 TO 800 MG
     Route: 048
     Dates: start: 20040401
  2. HALDOL [Concomitant]
     Dates: start: 20060720
  3. RISPERDAL [Concomitant]
  4. SEROQUEL [Suspect]
     Indication: SLEEP DISORDER
     Dosage: 50 TO 800 MG
     Route: 048
     Dates: start: 20040401
  5. ZOLOFT [Concomitant]

REACTIONS (4)
  - BLOOD CHOLESTEROL INCREASED [None]
  - OBESITY [None]
  - TYPE 2 DIABETES MELLITUS [None]
  - HYPERLIPIDAEMIA [None]
